FAERS Safety Report 5542205-2 (Version None)
Quarter: 2007Q4

REPORT INFORMATION
  Report Type: 
  Country: None (occurrence: None)
  Receive Date: 20071129
  Receipt Date: 20070618
  Transmission Date: 20080405
  Serious: Yes (Other)
  Sender: FDA-Public Use
  Company Number: US200704002714

PATIENT
  Age: 19 Year
  Sex: Male
  Weight: 68 kg

DRUGS (5)
  1. ZYPREXA [Suspect]
     Dosage: 20 MG, EACH EVENING
     Dates: start: 20050701, end: 20051001
  2. SEROQUEL [Concomitant]
  3. RISPERDAL [Concomitant]
  4. DEPAKOTE [Concomitant]
  5. PAXIL [Concomitant]

REACTIONS (7)
  - BLOOD CHOLESTEROL INCREASED [None]
  - BLOOD TRIGLYCERIDES INCREASED [None]
  - DIABETES MELLITUS [None]
  - DIABETIC COMA [None]
  - DIABETIC KETOACIDOSIS [None]
  - HYPERGLYCAEMIA [None]
  - PANCREATITIS [None]
